FAERS Safety Report 26068379 (Version 1)
Quarter: 2025Q4

REPORT INFORMATION
  Report Type: Spontaneous
  Country: CN (occurrence: CN)
  Receive Date: 20251120
  Receipt Date: 20251120
  Transmission Date: 20260117
  Serious: Yes (Death, Other)
  Sender: ORGANON
  Company Number: CN-BAT-2025BAT001235

PATIENT
  Age: 71 Year
  Sex: Male

DRUGS (8)
  1. TOCILIZUMAB-BAVI [Suspect]
     Active Substance: TOCILIZUMAB-BAVI
     Indication: Rheumatoid arthritis
     Dosage: 8MG/KG,EVERY 4 WEEKS
  2. LEFLUNOMIDE [Suspect]
     Active Substance: LEFLUNOMIDE
     Indication: Rheumatoid arthritis
     Dosage: 10MG,QD
  3. HERBALS [Suspect]
     Active Substance: HERBALS
     Indication: Rheumatoid arthritis
     Dosage: UNK
  4. CYCLOPHOSPHAMIDE [Suspect]
     Active Substance: CYCLOPHOSPHAMIDE
     Indication: Rheumatoid arthritis
     Dosage: 50MG,EVERY OTHER DAY
  5. PREDNISONE [Suspect]
     Active Substance: PREDNISONE
     Indication: Rheumatoid arthritis
     Dosage: 40MG,QD
  6. PREDNISONE [Suspect]
     Active Substance: PREDNISONE
     Dosage: 20MG,QD
  7. MEROPENEM [Concomitant]
     Active Substance: MEROPENEM
     Indication: Sepsis
     Dosage: UNK
  8. SULFAMETHOXAZOLE\TRIMETHOPRIM [Concomitant]
     Active Substance: SULFAMETHOXAZOLE\TRIMETHOPRIM
     Indication: Stenotrophomonas infection
     Dosage: UNK

REACTIONS (3)
  - Pneumonia bacterial [Fatal]
  - COVID-19 pneumonia [Recovered/Resolved]
  - Cytomegalovirus infection reactivation [Recovered/Resolved]

NARRATIVE: CASE EVENT DATE: 20250103
